FAERS Safety Report 13197177 (Version 3)
Quarter: 2017Q2

REPORT INFORMATION
  Report Type: Report from Study
  Country: US (occurrence: US)
  Receive Date: 20170208
  Receipt Date: 20170504
  Transmission Date: 20170830
  Serious: Yes (Other)
  Sender: FDA-Public Use
  Company Number: PHEH2017US003843

PATIENT
  Sex: Female
  Weight: 56.9 kg

DRUGS (2)
  1. VOTRIENT [Suspect]
     Active Substance: PAZOPANIB HYDROCHLORIDE
     Dosage: LOWER DOSE
     Route: 048
  2. VOTRIENT [Suspect]
     Active Substance: PAZOPANIB HYDROCHLORIDE
     Indication: RENAL CANCER
     Dosage: 800 MG, QD
     Route: 048
     Dates: start: 20161219, end: 20170111

REACTIONS (7)
  - Metastases to pancreas [Unknown]
  - Metastases to small intestine [Unknown]
  - Kidney fibrosis [Unknown]
  - Liver injury [Unknown]
  - Renal cancer [Unknown]
  - Renal necrosis [Unknown]
  - Malignant neoplasm progression [Unknown]
